FAERS Safety Report 25104575 (Version 1)
Quarter: 2025Q1

REPORT INFORMATION
  Report Type: Report from Study
  Country: CN (occurrence: CN)
  Receive Date: 20250321
  Receipt Date: 20250321
  Transmission Date: 20250409
  Serious: Yes (Death, Other)
  Sender: PFIZER
  Company Number: CN-PFIZER INC-202500061221

PATIENT
  Age: 38 Year
  Sex: Male

DRUGS (2)
  1. TIGECYCLINE [Suspect]
     Active Substance: TIGECYCLINE
     Indication: Intracranial infection
     Dosage: 50 MG Q12H
     Dates: start: 2022
  2. MEROPENEM [Concomitant]
     Active Substance: MEROPENEM
     Dates: start: 2022

REACTIONS (2)
  - Treatment failure [Fatal]
  - Drug level below therapeutic [Unknown]

NARRATIVE: CASE EVENT DATE: 20220101
